FAERS Safety Report 7536248-7 (Version None)
Quarter: 2011Q2

REPORT INFORMATION
  Report Type: 
  Country: None (occurrence: None)
  Receive Date: 20110602
  Receipt Date: 20110519
  Transmission Date: 20111010
  Serious: Yes (Hospitalization)
  Sender: FDA-Public Use
  Company Number: 2011S1000513

PATIENT
  Age: 52 Year
  Sex: Female

DRUGS (2)
  1. LIVALO [Suspect]
     Indication: HYPERCHOLESTEROLAEMIA
     Dosage: ;PO
     Route: 048
  2. OLANZAPINE [Suspect]
     Dosage: ;PO
     Route: 048

REACTIONS (1)
  - RHABDOMYOLYSIS [None]
